FAERS Safety Report 7676848-7 (Version None)
Quarter: 2011Q3

REPORT INFORMATION
  Report Type: 
  Country: None (occurrence: None)
  Receive Date: 20110811
  Receipt Date: 20110729
  Transmission Date: 20111222
  Serious: Yes (Hospitalization)
  Sender: FDA-Public Use
  Company Number: FR-SANOFI-AVENTIS-2011SA048523

PATIENT
  Age: 75 Year
  Sex: Female
  Weight: 129 kg

DRUGS (11)
  1. IXEL [Concomitant]
     Route: 065
  2. COUMADIN [Concomitant]
     Route: 065
  3. SULFARLEM [Concomitant]
     Route: 065
  4. ISOPTIN [Concomitant]
     Route: 065
  5. CLORAZEPATE DIPOTASSIUM [Suspect]
     Route: 065
     Dates: end: 20101215
  6. VALSARTAN [Concomitant]
     Route: 065
  7. SOLIAN [Concomitant]
     Route: 065
  8. ZOLPIDEM [Suspect]
     Route: 048
     Dates: end: 20101213
  9. VALIUM [Suspect]
     Route: 065
     Dates: end: 20101213
  10. DIHYDROERGOTAMINE MESYLATE [Suspect]
     Route: 065
     Dates: end: 20101213
  11. COUMADIN [Concomitant]
     Route: 065

REACTIONS (1)
  - HEPATITIS CHOLESTATIC [None]
